FAERS Safety Report 10506056 (Version 1)
Quarter: 2014Q4

REPORT INFORMATION
  Report Type: Spontaneous
  Country: PL (occurrence: PL)
  Receive Date: 20141008
  Receipt Date: 20141008
  Transmission Date: 20150528
  Serious: Yes (Other)
  Sender: FDA-Public Use
  Company Number: PHHY2014PL129870

PATIENT
  Sex: Male

DRUGS (2)
  1. METHOTREXATE [Suspect]
     Active Substance: METHOTREXATE
     Dosage: 15 MG, QW (PER WEEK)
     Route: 048
     Dates: start: 201303, end: 201306
  2. METHOTREXATE [Suspect]
     Active Substance: METHOTREXATE
     Indication: STILL^S DISEASE ADULT ONSET
     Dosage: UNK UKN, UNK (2 YEARS AGO)
     Route: 065

REACTIONS (3)
  - Weight decreased [Unknown]
  - Asthenia [Unknown]
  - Nausea [Unknown]
